FAERS Safety Report 4991306-6 (Version None)
Quarter: 2006Q2

REPORT INFORMATION
  Report Type: 
  Country: None (occurrence: None)
  Receive Date: 20060428
  Receipt Date: 20060418
  Transmission Date: 20061013
  Serious: Yes (Hospitalization)
  Sender: FDA-Public Use
  Company Number: 2005BI004437

PATIENT
  Age: 21 Year
  Sex: Female

DRUGS (3)
  1. AVONEX [Suspect]
     Indication: MULTIPLE SCLEROSIS
     Dosage: 30 UG;QW;IM
     Route: 030
     Dates: start: 20000101, end: 20030101
  2. AVONEX [Suspect]
     Indication: MULTIPLE SCLEROSIS
     Dosage: 30 UG;QW;IM
     Route: 030
     Dates: start: 20031218
  3. NOVANTRONE [Concomitant]

REACTIONS (7)
  - ARTHROPOD BITE [None]
  - CONDITION AGGRAVATED [None]
  - GINGIVAL BLEEDING [None]
  - MULTIPLE SCLEROSIS [None]
  - PARVOVIRUS INFECTION [None]
  - SKIN HAEMORRHAGE [None]
  - WHITE BLOOD CELL COUNT DECREASED [None]
